FAERS Safety Report 23231098 (Version 1)
Quarter: 2023Q4

REPORT INFORMATION
  Report Type: Spontaneous
  Country: BT (occurrence: BT)
  Receive Date: 20231127
  Receipt Date: 20231127
  Transmission Date: 20240109
  Serious: Yes (Other)
  Sender: FDA-Public Use
  Company Number: BT-SUN PHARMACEUTICAL INDUSTRIES LTD-2023R1-420468

PATIENT
  Age: 40 Year
  Sex: Male

DRUGS (1)
  1. TRIAMCINOLONE [Suspect]
     Active Substance: TRIAMCINOLONE
     Indication: Oral submucosal fibrosis
     Dosage: 1 MILLILITER, 2/WEEK
     Route: 026

REACTIONS (1)
  - Cushing^s syndrome [Unknown]
